FAERS Safety Report 6949552 (Version 2)
Quarter: 2012Q4

REPORT INFORMATION
  Report Type: 
  Country: US (occurrence: US)
  Receive Date: 20090324
  Receipt Date: 20121012
  Transmission Date: 20130627
  Serious: Yes (Other)
  Sender: FDA-Public Use
  Company Number: US-PFIZER INC-2009181967

PATIENT
  Age: 63 Year
  Sex: Female

DRUGS (10)
  1. PROVERA [Suspect]
     Indication: HORMONE REPLACEMENT THERAPY
     Dosage: 2.5-10 mg
     Route: 048
  2. PROVERA [Suspect]
     Dosage: UNK
     Dates: start: 199509, end: 199901
  3. PROVERA [Suspect]
     Dosage: UNK
     Dates: start: 200101, end: 200101
  4. PREMARIN [Suspect]
     Indication: HORMONE REPLACEMENT THERAPY
     Dosage: 0.9 mg, UNK
     Route: 048
  5. PREMARIN [Suspect]
     Dosage: UNK
     Dates: start: 199509, end: 200101
  6. PREMPRO [Suspect]
     Indication: HORMONE REPLACEMENT THERAPY
     Dosage: UNK
     Route: 048
  7. MEDROXYPROGESTERONE ACETATE [Suspect]
     Indication: HORMONE REPLACEMENT THERAPY
     Dosage: UNK
     Route: 048
  8. MEDROXYPROGESTERONE ACETATE [Suspect]
     Indication: HORMONE REPLACEMENT THERAPY
     Dosage: 2.5 mg, UNK
     Route: 048
  9. MEDROXYPROGESTERONE ACETATE [Suspect]
     Dosage: UNK
     Dates: start: 199901, end: 200101
  10. ESTROGEN NOS [Suspect]
     Indication: HORMONE REPLACEMENT THERAPY
     Dosage: UNK

REACTIONS (1)
  - Breast cancer female [Unknown]
